FAERS Safety Report 18013833 (Version 1)
Quarter: 2020Q3

REPORT INFORMATION
  Report Type: Report from Study
  Country: None (occurrence: IT)
  Receive Date: 20200713
  Receipt Date: 20200713
  Transmission Date: 20201103
  Serious: Yes (Hospitalization)
  Sender: FDA-Public Use
  Company Number: IT-ABBVIE-20K-083-3478753-00

PATIENT
  Age: 68 Year
  Sex: Female

DRUGS (1)
  1. DUODOPA [Suspect]
     Active Substance: CARBIDOPA\LEVODOPA
     Indication: PARKINSON^S DISEASE
     Dosage: MD: 6,5+3??CR: 3 (12H)??ED: 2
     Route: 050
     Dates: start: 20170918

REACTIONS (4)
  - Condition aggravated [Unknown]
  - Depressed mood [Unknown]
  - Clostridial infection [Unknown]
  - Asthenia [Unknown]

NARRATIVE: CASE EVENT DATE: 202005
